FAERS Safety Report 4629857-6 (Version None)
Quarter: 2005Q2

REPORT INFORMATION
  Report Type: 
  Country: None (occurrence: None)
  Receive Date: 20050407
  Receipt Date: 20050322
  Transmission Date: 20051028
  Serious: Yes (Hospitalization)
  Sender: FDA-Public Use
  Company Number: 200510762GDS

PATIENT
  Age: 50 Year
  Sex: Female
  Weight: 72.6 kg

DRUGS (4)
  1. ASPIRIN [Suspect]
     Indication: PROPHYLAXIS
     Dates: start: 20030101, end: 20041101
  2. ZOLEDRONIC ACID [Suspect]
     Indication: METASTASES TO BONE
     Dosage: 4 MG, TIW, INTRAVENOUS
     Route: 042
     Dates: start: 20031125, end: 20040819
  3. PRIMADEX [Concomitant]
  4. CHEMOTHERAPEUTICS [Concomitant]

REACTIONS (4)
  - FEELING ABNORMAL [None]
  - HAEMOPTYSIS [None]
  - VIRAL INFECTION [None]
  - VOMITING [None]
